FAERS Safety Report 5746577-5 (Version None)
Quarter: 2008Q2

REPORT INFORMATION
  Report Type: 
  Country: None (occurrence: None)
  Receive Date: 20080522
  Receipt Date: 20080512
  Transmission Date: 20081010
  Serious: Yes (Hospitalization, Other)
  Sender: FDA-Public Use
  Company Number: US-MERCK-0801USA03922

PATIENT
  Age: 75 Year
  Sex: Female

DRUGS (6)
  1. FOSAMAX [Suspect]
     Indication: OSTEOPOROSIS PROPHYLAXIS
     Route: 048
     Dates: start: 19970101, end: 20060101
  2. FOSAMAX [Suspect]
     Route: 048
     Dates: start: 20011018
  3. FOSAMAX [Suspect]
     Route: 048
     Dates: start: 19970101, end: 20011018
  4. [THERAPY UNSPECIFIED] [Concomitant]
     Indication: HYPERTENSION
     Route: 065
     Dates: start: 19900101
  5. [THERAPY UNSPECIFIED] [Concomitant]
     Indication: RHEUMATOID ARTHRITIS
     Route: 065
     Dates: start: 19800101
  6. CORTICOSTEROIDS (UNSPECIFIED) [Concomitant]
     Route: 065
     Dates: start: 19900101

REACTIONS (22)
  - ACTINOMYCOSIS [None]
  - ANXIETY [None]
  - BONE LESION [None]
  - CARDIOMEGALY [None]
  - CONCUSSION [None]
  - DEEP VEIN THROMBOSIS [None]
  - DENTAL CARIES [None]
  - DEPRESSION [None]
  - GINGIVAL DISORDER [None]
  - INFECTION [None]
  - LUNG DISORDER [None]
  - MYOCARDIAL INFARCTION [None]
  - OEDEMA MUCOSAL [None]
  - OSTEOMYELITIS [None]
  - OSTEONECROSIS [None]
  - PERIODONTITIS [None]
  - PULMONARY EMBOLISM [None]
  - SINUSITIS [None]
  - STEROID THERAPY [None]
  - SYNOVITIS [None]
  - TOOTH FRACTURE [None]
  - TYPE 2 DIABETES MELLITUS [None]
